FAERS Safety Report 4830289-6 (Version None)
Quarter: 2005Q4

REPORT INFORMATION
  Report Type: 
  Country: None (occurrence: None)
  Receive Date: 20051114
  Receipt Date: 20051102
  Transmission Date: 20060501
  Serious: Yes (Hospitalization)
  Sender: FDA-Public Use
  Company Number: 2005149846

PATIENT
  Age: 9 Year
  Sex: Male

DRUGS (2)
  1. ATARAX [Suspect]
     Indication: PRURITUS
     Dosage: 60 MG (20 MG, 3 IN 1D), ORAL
     Route: 048
     Dates: start: 20051016, end: 20051016
  2. ATARAX [Suspect]
     Indication: VARICELLA
     Dosage: 60 MG (20 MG, 3 IN 1D), ORAL
     Route: 048
     Dates: start: 20051016, end: 20051016

REACTIONS (2)
  - ANAPHYLACTIC REACTION [None]
  - OVERDOSE [None]
